FAERS Safety Report 14265634 (Version 5)
Quarter: 2018Q1

REPORT INFORMATION
  Report Type: Report from Study
  Country: DE (occurrence: DE)
  Receive Date: 20171208
  Receipt Date: 20180315
  Transmission Date: 20180508
  Serious: Yes (Hospitalization, Other)
  Sender: FDA-Public Use
  Company Number: DE-BAUSCH-BL-2017-032777

PATIENT
  Sex: Male

DRUGS (17)
  1. PREDNISOLONE. [Suspect]
     Active Substance: PREDNISOLONE
     Dosage: 500 MG, ONE IN ONE DAY FOR 5 DAYS
     Route: 048
     Dates: start: 20171107, end: 20171111
  2. DOXORUBICINE [Suspect]
     Active Substance: DOXORUBICIN
     Indication: B-CELL LYMPHOMA
     Route: 042
     Dates: start: 20171012, end: 20171012
  3. SIMVASTATIN. [Concomitant]
     Active Substance: SIMVASTATIN
     Indication: HYPERCHOLESTEROLAEMIA
     Route: 048
     Dates: start: 20171010
  4. ASPIRIN. [Concomitant]
     Active Substance: ASPIRIN
     Indication: PROPHYLAXIS
     Dosage: 1500 MG CUMULATIVE DOSE
     Route: 048
     Dates: start: 20171010
  5. TAMSULOSIN [Concomitant]
     Active Substance: TAMSULOSIN
     Indication: BENIGN PROSTATIC HYPERPLASIA
     Route: 048
     Dates: start: 20171010
  6. TAMSULOSIN [Concomitant]
     Active Substance: TAMSULOSIN
     Route: 065
     Dates: start: 20171010
  7. PREDNISOLONE. [Suspect]
     Active Substance: PREDNISOLONE
     Indication: B-CELL LYMPHOMA
     Dosage: CUMULATIVE DOSAGE 500MG, DATE OF LAST DOSE OF A PRIOR TO SERIOUS ADVERSE EVENT  07/DEC/2017
     Route: 042
     Dates: start: 20171012, end: 20171012
  8. PEGFILGRASTIM [Suspect]
     Active Substance: PEGFILGRASTIM
     Indication: B-CELL LYMPHOMA
     Route: 042
     Dates: start: 20171015, end: 20171015
  9. CYCLOPHOSPHAMIDE. [Suspect]
     Active Substance: CYCLOPHOSPHAMIDE
     Dosage: 1 TIME A DAY FOR 1 DAY; DATE OF LAST DOSE OF A PRIOR TO SERIOUS ADVERSE EVENT 07/DEC/2017
     Route: 042
     Dates: start: 20171108, end: 20171108
  10. RITUXIMAB. [Suspect]
     Active Substance: RITUXIMAB
     Dosage: 660 MG, QD; MOST RECENT CYCLE NUMBER: 3 DATE LAST RITUXIMAB GIVEN PRIOR TO SAE 07/NOV/17
     Route: 042
     Dates: start: 20171107, end: 20171107
  11. ZOPICLONE [Concomitant]
     Active Substance: ZOPICLONE
     Indication: SLEEP DISORDER THERAPY
     Route: 048
     Dates: start: 20171010
  12. PEGFILGRASTIM [Suspect]
     Active Substance: PEGFILGRASTIM
     Route: 058
     Dates: start: 20171111, end: 20171111
  13. CYCLOPHOSPHAMIDE. [Suspect]
     Active Substance: CYCLOPHOSPHAMIDE
     Indication: B-CELL LYMPHOMA
     Route: 042
     Dates: start: 20171012, end: 20171012
  14. DOXORUBICINE [Suspect]
     Active Substance: DOXORUBICIN
     Dosage: 95 MG, UNK (1 TIME A DAY FOR 1 DAY)
     Route: 042
     Dates: start: 20171108, end: 20171108
  15. RITUXIMAB. [Suspect]
     Active Substance: RITUXIMAB
     Indication: B-CELL LYMPHOMA
     Dosage: DATE OF LAST DOSE OF A PRIOR TO SERIOUS ADVERSE EVENT 06/DEC/2017
     Route: 042
     Dates: start: 20171011, end: 20171011
  16. VINCRISTINE [Suspect]
     Active Substance: VINCRISTINE
     Indication: B-CELL LYMPHOMA
     Dosage: 3.12 MG, QD, DATE OF LAST DOSE OF A PRIOR TO SERIOUS ADVERSE EVENT: 07/DEC/2017
     Route: 042
     Dates: start: 20171012, end: 20171012
  17. LISINOPRIL. [Concomitant]
     Active Substance: LISINOPRIL
     Indication: ANGIOTENSIN CONVERTING ENZYME DECREASED
     Route: 048
     Dates: start: 20171010

REACTIONS (4)
  - Acute kidney injury [Recovered/Resolved]
  - Anaemia [Recovered/Resolved]
  - Bronchitis [Recovered/Resolved]
  - Lung infection [Recovered/Resolved]

NARRATIVE: CASE EVENT DATE: 20171024
